FAERS Safety Report 19613979 (Version 1)
Quarter: 2021Q3

REPORT INFORMATION
  Report Type: Report from Study
  Country: FR (occurrence: FR)
  Receive Date: 20210727
  Receipt Date: 20210727
  Transmission Date: 20211014
  Serious: Yes (Other)
  Sender: FDA-Public Use
  Company Number: FR-AUROBINDO-AUR-APL-2017-04193

PATIENT
  Age: 68 Year
  Sex: Female

DRUGS (1)
  1. FENOFIBRATE. [Suspect]
     Active Substance: FENOFIBRATE
     Indication: HYPERCHOLESTEROLAEMIA
     Dosage: UNK

REACTIONS (7)
  - Muscle enzyme increased [Recovering/Resolving]
  - Arthralgia [Unknown]
  - Antisynthetase syndrome [Unknown]
  - Mechanic^s hand [Unknown]
  - Polymyositis [Recovering/Resolving]
  - Polymyalgia rheumatica [Recovering/Resolving]
  - Muscular weakness [Recovering/Resolving]
